FAERS Safety Report 11844665 (Version 2)
Quarter: 2016Q1

REPORT INFORMATION
  Report Type: Spontaneous
  Country: JP (occurrence: JP)
  Receive Date: 20151217
  Receipt Date: 20160208
  Transmission Date: 20160526
  Serious: Yes (Other)
  Sender: FDA-Public Use
  Company Number: JP-JNJFOC-20151211526

PATIENT
  Age: 2 Year
  Sex: Male
  Weight: 15.9 kg

DRUGS (1)
  1. REMICADE [Suspect]
     Active Substance: INFLIXIMAB
     Indication: KAWASAKI^S DISEASE
     Route: 042

REACTIONS (4)
  - Product use issue [Unknown]
  - Coronary artery aneurysm [Unknown]
  - Off label use [Unknown]
  - Kawasaki^s disease [Unknown]
